FAERS Safety Report 15686621 (Version 2)
Quarter: 2019Q1

REPORT INFORMATION
  Report Type: Spontaneous
  Country: PL (occurrence: PL)
  Receive Date: 20181204
  Receipt Date: 20190115
  Transmission Date: 20190417
  Serious: Yes (Hospitalization, Other)
  Sender: FDA-Public Use
  Company Number: PHHY2018PL170475

PATIENT
  Age: 42 Year
  Sex: Female

DRUGS (4)
  1. PARACETAMOL [Suspect]
     Active Substance: ACETAMINOPHEN
     Indication: RESPIRATORY TRACT INFECTION
     Dosage: UNK
     Route: 065
  2. CIPROFLOXACIN CLARIS [Suspect]
     Active Substance: CIPROFLOXACIN LACTATE
     Indication: RESPIRATORY TRACT INFECTION
     Dosage: UNK
     Route: 065
  3. PSEUDOEPHEDRINE. [Suspect]
     Active Substance: PSEUDOEPHEDRINE HYDROCHLORIDE
     Indication: RESPIRATORY TRACT INFECTION
     Dosage: UNK
     Route: 065
  4. DEXTROMETHORPHAN [Suspect]
     Active Substance: DEXTROMETHORPHAN
     Indication: RESPIRATORY TRACT INFECTION
     Route: 065

REACTIONS (3)
  - Chills [Unknown]
  - Eyelid function disorder [Unknown]
  - Acute generalised exanthematous pustulosis [Recovered/Resolved]
